APPROVED DRUG PRODUCT: KETALAR
Active Ingredient: KETAMINE HYDROCHLORIDE
Strength: EQ 50MG BASE/ML
Dosage Form/Route: INJECTABLE;INJECTION
Application: N016812 | Product #002 | TE Code: AP
Applicant: PH HEALTH LTD
Approved: Approved Prior to Jan 1, 1982 | RLD: Yes | RS: No | Type: RX